FAERS Safety Report 8294363-7 (Version None)
Quarter: 2012Q2

REPORT INFORMATION
  Report Type: 
  Country: None (occurrence: None)
  Receive Date: 20120418
  Receipt Date: 20120412
  Transmission Date: 20120825
  Serious: Yes (Hospitalization, Other)
  Sender: FDA-Public Use
  Company Number: US-PFIZER INC-2009164435

PATIENT
  Sex: Female
  Weight: 107 kg

DRUGS (5)
  1. DEPO-PROVERA [Suspect]
     Indication: MENSTRUAL DISCOMFORT
  2. CLONAZEPAM [Concomitant]
     Dosage: 2 MG, 2X/DAY
     Route: 048
  3. AMLODIPINE [Concomitant]
     Indication: HYPERTENSION
     Dosage: 2 MG, 2X/DAY
  4. LORTAB [Concomitant]
     Indication: BACK DISORDER
     Dosage: UNK, DAILY
     Route: 048
  5. DEPO-PROVERA [Suspect]
     Indication: OFF LABEL USE
     Dosage: 150 MG,ONCE IN THREE MONTHS
     Dates: start: 20080522

REACTIONS (10)
  - DYSPNOEA [None]
  - HEADACHE [None]
  - FOOT FRACTURE [None]
  - FALL [None]
  - GAIT DISTURBANCE [None]
  - PULMONARY THROMBOSIS [None]
  - THROMBOSIS [None]
  - PARANOIA [None]
  - NERVOUSNESS [None]
  - HYPOAESTHESIA [None]
